FAERS Safety Report 26192057 (Version 1)
Quarter: 2025Q4

REPORT INFORMATION
  Report Type: Report from Study
  Country: US (occurrence: US)
  Receive Date: 20251223
  Receipt Date: 20251223
  Transmission Date: 20260118
  Serious: Yes (Hospitalization, Other)
  Sender: MERCK KGAA
  Company Number: US-Merck Healthcare KGaA-2025032911

PATIENT
  Age: 64 Year
  Sex: Female

DRUGS (2)
  1. MAVENCLAD [Suspect]
     Active Substance: CLADRIBINE
     Indication: Multiple sclerosis
     Dosage: YEAR ONE MONTH ONE THERAPY
  2. MAVENCLAD [Suspect]
     Active Substance: CLADRIBINE
     Dosage: YEAR ONE MONTH TWO THERAPY
     Dates: start: 20241130, end: 20241204

REACTIONS (9)
  - Colitis ulcerative [Unknown]
  - Mitral valve disease [Unknown]
  - Cough [Unknown]
  - Blood pressure increased [Unknown]
  - Cerebral arteriosclerosis [Unknown]
  - Transient ischaemic attack [Unknown]
  - Fall [Unknown]
  - Hand fracture [Unknown]
  - Synovial cyst [Unknown]

NARRATIVE: CASE EVENT DATE: 20250105
